FAERS Safety Report 6073654-4 (Version None)
Quarter: 2009Q1

REPORT INFORMATION
  Report Type: 
  Country: None (occurrence: None)
  Receive Date: 20090211
  Receipt Date: 20090130
  Transmission Date: 20090719
  Serious: Yes (Death)
  Sender: FDA-Public Use
  Company Number: US-TYCO HEALTHCARE/MALLINCKRODT-T200900204

PATIENT
  Sex: Male

DRUGS (4)
  1. OXYCODONE HCL EXTENDED-RELEASE [Suspect]
  2. CYCLOBENZAPRINE [Suspect]
  3. ZOLPIDEM [Suspect]
  4. GABAPENTIN [Suspect]

REACTIONS (2)
  - CARDIO-RESPIRATORY ARREST [None]
  - COMPLETED SUICIDE [None]
